FAERS Safety Report 13719176 (Version 1)
Quarter: 2017Q3

REPORT INFORMATION
  Report Type: Spontaneous
  Country: CN (occurrence: CN)
  Receive Date: 20170705
  Receipt Date: 20170705
  Transmission Date: 20171127
  Serious: Yes (Death, Other)
  Sender: FDA-Public Use
  Company Number: CN-PFIZER INC-2017272462

PATIENT
  Age: 42 Year
  Sex: Male

DRUGS (8)
  1. METHOTREXATE. [Suspect]
     Active Substance: METHOTREXATE
     Dosage: 1.8 G, CYCLIC, (THIRD COURSE)
     Route: 042
  2. METHOTREXATE. [Suspect]
     Active Substance: METHOTREXATE
     Dosage: UNK
  3. CISPLATIN. [Concomitant]
     Active Substance: CISPLATIN
     Indication: NON-HODGKIN^S LYMPHOMA
     Dosage: UNK, CYCLIC, (ONE COURSE)
     Dates: start: 201212, end: 201302
  4. METHOTREXATE. [Suspect]
     Active Substance: METHOTREXATE
     Dosage: 1.1 G, CYCLIC, (INTRAVENOUS PUMP, FOURTH COURSE, ON THE THIRD DAY)
     Route: 042
     Dates: start: 20130321
  5. METHOTREXATE. [Suspect]
     Active Substance: METHOTREXATE
     Indication: NON-HODGKIN^S LYMPHOMA
     Dosage: 1.5 G, CYCLIC, (SECOND COURSES)
     Route: 042
  6. PEGASPARGASE [Concomitant]
     Active Substance: PEGASPARGASE
     Indication: NON-HODGKIN^S LYMPHOMA
     Dosage: UNK, CYCLIC, (ONE COURSE)
     Dates: start: 201212, end: 201302
  7. DEXAMETHASONE. [Concomitant]
     Active Substance: DEXAMETHASONE
     Indication: NON-HODGKIN^S LYMPHOMA
     Dosage: UNK, CYCLIC, (ONE COURSE)
     Dates: start: 201212, end: 201302
  8. GEMCITABINE [Concomitant]
     Active Substance: GEMCITABINE\GEMCITABINE HYDROCHLORIDE
     Indication: NON-HODGKIN^S LYMPHOMA
     Dosage: UNK, CYCLIC, (ONE COURSE)
     Dates: start: 201212, end: 201302

REACTIONS (1)
  - Neurotoxicity [Fatal]
